FAERS Safety Report 8976203 (Version 4)
Quarter: 2013Q4

REPORT INFORMATION
  Report Type: Spontaneous
  Country: BR (occurrence: BR)
  Receive Date: 20121220
  Receipt Date: 20131001
  Transmission Date: 20140711
  Serious: Yes (Other)
  Sender: FDA-Public Use
  Company Number: PHHY2012BR115573

PATIENT
  Sex: Female
  Weight: 123 kg

DRUGS (13)
  1. DICLOFENAC [Suspect]
     Indication: PAIN
     Dosage: 2 DE (50 MG) PER DAY
  2. VOLTAREN [Suspect]
     Indication: PAIN
     Dosage: 2 DF, QD (PER DAY)
     Route: 048
  3. CATAFLAM [Suspect]
     Indication: PAIN
     Dosage: 2 DF, QD (PER DAY)
     Route: 048
  4. PURAN T4 [Suspect]
     Indication: THYROID DISORDER
     Dosage: 1 DF, QD (PER DAY)
     Route: 048
  5. MELOXICAM [Concomitant]
     Indication: PAIN
     Dosage: 1 DF, QD (PER DAY)
     Route: 048
  6. MELOXICAM [Concomitant]
     Indication: NERVOUSNESS
  7. MELOXICAM [Concomitant]
     Indication: INSOMNIA
  8. RANITIDINE [Concomitant]
     Indication: PAIN
     Dosage: 1 DF, QD (PER DAY)
     Route: 048
  9. RANITIDINE [Concomitant]
     Indication: NERVOUSNESS
  10. RANITIDINE [Concomitant]
     Indication: INSOMNIA
  11. CYCLOBENZAPRINE [Concomitant]
     Indication: PAIN
     Dosage: 1 DF, QD (PER DAY)
     Route: 048
  12. CYCLOBENZAPRINE [Concomitant]
     Indication: NERVOUSNESS
  13. CYCLOBENZAPRINE [Concomitant]
     Indication: INSOMNIA

REACTIONS (11)
  - Thyroid disorder [Recovering/Resolving]
  - Osteoarthritis [Not Recovered/Not Resolved]
  - Pain [Not Recovered/Not Resolved]
  - Sputum increased [Recovered/Resolved]
  - Hyperhidrosis [Recovered/Resolved]
  - Agitation [Recovered/Resolved]
  - Feeling hot [Recovered/Resolved]
  - Local swelling [Recovered/Resolved]
  - Insomnia [Not Recovered/Not Resolved]
  - Abdominal pain upper [Recovered/Resolved]
  - Visual impairment [Unknown]
